FAERS Safety Report 7376886-8 (Version None)
Quarter: 2011Q1

REPORT INFORMATION
  Report Type: 
  Country: None (occurrence: None)
  Receive Date: 20110327
  Receipt Date: 20110315
  Transmission Date: 20110831
  Serious: Yes (Hospitalization)
  Sender: FDA-Public Use
  Company Number: US-CELGENEUS-163-21880-11031861

PATIENT
  Sex: Male
  Weight: 106.69 kg

DRUGS (12)
  1. CELL CEPT [Concomitant]
     Route: 065
  2. FOLIC ACID [Concomitant]
     Route: 065
  3. MULTI-VITAMINS [Concomitant]
     Route: 065
  4. TACROLIMUS [Concomitant]
     Route: 065
  5. REVLIMID [Suspect]
     Dosage: 25 MILLIGRAM
     Route: 048
     Dates: start: 20110209, end: 20110101
  6. PREDNISONE [Concomitant]
     Route: 065
  7. MAGNESIUM [Concomitant]
     Route: 065
  8. NYSTATIN [Concomitant]
     Route: 065
  9. OMEPRAZOLE [Concomitant]
     Route: 065
  10. MEPRON [Concomitant]
     Route: 065
  11. REVLIMID [Suspect]
     Dosage: 10 MILLIGRAM
     Route: 048
     Dates: start: 20110301
  12. ACYCLOVIR [Concomitant]
     Route: 065

REACTIONS (1)
  - RENAL DISORDER [None]
